FAERS Safety Report 4906914-8 (Version None)
Quarter: 2006Q1

REPORT INFORMATION
  Report Type: 
  Country: None (occurrence: None)
  Receive Date: 20060209
  Receipt Date: 20050118
  Transmission Date: 20060701
  Serious: Yes (Hospitalization)
  Sender: FDA-Public Use
  Company Number: SE-NOVOPROD-241790

PATIENT
  Age: 65 Year
  Sex: Female

DRUGS (3)
  1. ACTIVELLE [Suspect]
     Indication: HORMONE REPLACEMENT THERAPY
     Dates: start: 19980801, end: 20011225
  2. WARAN [Concomitant]
     Dates: start: 20020218, end: 20020507
  3. VAGIFEM [Concomitant]
     Dates: start: 20020704

REACTIONS (2)
  - DEEP VEIN THROMBOSIS [None]
  - THROMBOPHLEBITIS [None]
